FAERS Safety Report 23336812 (Version 2)
Quarter: 2024Q1

REPORT INFORMATION
  Report Type: Spontaneous
  Country: GB (occurrence: GB)
  Receive Date: 20231226
  Receipt Date: 20240122
  Transmission Date: 20240410
  Serious: Yes (Hospitalization, Other)
  Sender: FDA-Public Use
  Company Number: None

PATIENT
  Age: 73 Year
  Weight: 106 kg

DRUGS (8)
  1. LEVOFLOXACIN [Suspect]
     Active Substance: LEVOFLOXACIN
     Indication: Infection
     Dosage: 500MG TWICE DAILY; DURATION: 5 DAYS
     Route: 065
     Dates: start: 20231103, end: 20231108
  2. LEVOFLOXACIN [Suspect]
     Active Substance: LEVOFLOXACIN
     Indication: Infection
     Dosage: DURATION : 35 DAYS
     Route: 065
     Dates: start: 20231103, end: 20231208
  3. FAMOTIDINE [Concomitant]
     Active Substance: FAMOTIDINE
  4. FLUDROCORTISONE [Concomitant]
     Active Substance: FLUDROCORTISONE
  5. ACYCLOVIR [Concomitant]
     Active Substance: ACYCLOVIR
     Indication: Antiviral prophylaxis
  6. METHOTREXATE [Suspect]
     Active Substance: METHOTREXATE
     Indication: Central nervous system neoplasm
     Dosage: (2GM/2/M2); DURATION: 1 DAYS,  FIRST AND SECOND CYCLES GIVEN ON 12.09.23 AND 11.10.23 WERE UNEVEN...
     Route: 042
     Dates: start: 20230912, end: 20231108
  7. FLUCONAZOLE [Concomitant]
     Active Substance: FLUCONAZOLE
  8. APIXABAN [Concomitant]
     Active Substance: APIXABAN
     Indication: Anticoagulant therapy

REACTIONS (3)
  - Renal failure [Recovered/Resolved with Sequelae]
  - Acute kidney injury [Unknown]
  - Drug interaction [Unknown]

NARRATIVE: CASE EVENT DATE: 20231110
